FAERS Safety Report 8349443-4 (Version None)
Quarter: 2012Q2

REPORT INFORMATION
  Report Type: 
  Country: None (occurrence: None)
  Receive Date: 20120510
  Receipt Date: 20120501
  Transmission Date: 20120825
  Serious: Yes (Hospitalization)
  Sender: FDA-Public Use
  Company Number: US-SANOFI-AVENTIS-2012SA024468

PATIENT
  Age: 79 Year
  Sex: Male
  Weight: 102.3 kg

DRUGS (17)
  1. GLIPIZIDE [Concomitant]
     Indication: DRUG THERAPY
     Route: 048
  2. INSULIN [Concomitant]
     Indication: DRUG THERAPY
     Route: 048
  3. GABAPENTIN [Concomitant]
     Indication: DRUG THERAPY
     Route: 048
  4. CABAZITAXEL [Suspect]
     Indication: PROSTATE CANCER METASTATIC
     Route: 042
     Dates: start: 20120103, end: 20120103
  5. ZOLOFT [Concomitant]
     Indication: DRUG THERAPY
     Route: 048
  6. ROSUVASTATIN CALCIUM [Concomitant]
     Indication: DRUG THERAPY
     Route: 048
  7. TYLENOL PM [Concomitant]
     Indication: DRUG THERAPY
     Route: 048
  8. AMLODIPINE BESYLATE [Concomitant]
     Indication: DRUG THERAPY
     Route: 048
  9. POTASSIUM CHLORIDE [Concomitant]
     Route: 048
  10. PREDNISONE TAB [Suspect]
     Indication: PROSTATE CANCER METASTATIC
     Route: 048
     Dates: start: 20120103, end: 20120402
  11. ATENOLOL [Concomitant]
     Indication: DRUG THERAPY
     Route: 048
  12. MECLIZINE [Concomitant]
     Indication: DRUG THERAPY
     Route: 048
  13. CABAZITAXEL [Suspect]
     Route: 042
     Dates: start: 20120326, end: 20120326
  14. AGGRENOX [Concomitant]
     Indication: PROPHYLAXIS
     Route: 048
  15. BACLOFEN [Concomitant]
     Indication: DRUG THERAPY
     Route: 048
  16. TAMSULOSIN HYDROCHLORIDE [Concomitant]
     Indication: DRUG THERAPY
     Route: 048
  17. ASPIRIN [Concomitant]
     Indication: DRUG THERAPY
     Route: 048

REACTIONS (2)
  - ATRIAL FIBRILLATION [None]
  - SYNCOPE [None]
